FAERS Safety Report 6816968-X (Version None)
Quarter: 2010Q3

REPORT INFORMATION
  Report Type: 
  Country: None (occurrence: None)
  Receive Date: 20100706
  Receipt Date: 20100623
  Transmission Date: 20110219
  Serious: Yes (Hospitalization)
  Sender: FDA-Public Use
  Company Number: PHHY2010IL41556

PATIENT

DRUGS (1)
  1. RASILEZ [Suspect]
     Dosage: UNK,UNK
     Route: 048

REACTIONS (1)
  - PULMONARY OEDEMA [None]
